FAERS Safety Report 10722071 (Version 1)
Quarter: 2015Q1

REPORT INFORMATION
  Report Type: Spontaneous
  Country: US (occurrence: US)
  Receive Date: 20150119
  Receipt Date: 20150119
  Transmission Date: 20150721
  Serious: Yes (Hospitalization, Other)
  Sender: FDA-Public Use
  Company Number: US-APOTEX-2015AP005180

PATIENT
  Age: 34 Year
  Sex: Male

DRUGS (7)
  1. PYRAZINAMIDE. [Interacting]
     Active Substance: PYRAZINAMIDE
     Indication: DISSEMINATED TUBERCULOSIS
     Dosage: 1500 MG, UNKNOWN
     Route: 065
  2. ISONIAZID. [Concomitant]
     Active Substance: ISONIAZID
     Indication: DISSEMINATED TUBERCULOSIS
     Dosage: 300 MG, DAILY
     Route: 048
  3. MYCOBUTIN [Concomitant]
     Active Substance: RIFABUTIN
     Indication: DISSEMINATED TUBERCULOSIS
     Dosage: 300 MG, DAILY
     Route: 048
  4. MYAMBUTOL [Concomitant]
     Active Substance: ETHAMBUTOL HYDROCHLORIDE
     Indication: DISSEMINATED TUBERCULOSIS
     Dosage: 1200 MG, UNKNOWN
     Route: 065
  5. ALLOPURINOL TABLETS USP [Suspect]
     Active Substance: ALLOPURINOL
     Indication: PRODUCT USED FOR UNKNOWN INDICATION
     Dosage: 100 MG, BID
     Route: 048
  6. PROGRAF [Concomitant]
     Active Substance: TACROLIMUS\TACROLIMUS ANHYDROUS
     Indication: IMMUNOSUPPRESSANT DRUG THERAPY
     Dosage: 3MG EVERY MORNING, 4MG EVERY EVENING
     Route: 048
  7. PYRIDOXINE [Concomitant]
     Active Substance: PYRIDOXINE
     Indication: DISSEMINATED TUBERCULOSIS
     Dosage: 25 MG, SUPPLEMENTATION
     Route: 065

REACTIONS (3)
  - Hyperuricaemia [Recovered/Resolved]
  - Urate nephropathy [Recovered/Resolved]
  - Drug interaction [Recovered/Resolved]
